FAERS Safety Report 11927104 (Version 1)
Quarter: 2016Q1

REPORT INFORMATION
  Report Type: Spontaneous
  Country: US (occurrence: None)
  Receive Date: 20160115
  Receipt Date: 20160115
  Transmission Date: 20160526
  Serious: No
  Sender: FDA-Public Use
  Company Number: None

PATIENT
  Age: 39 Year
  Sex: Female
  Weight: 105.69 kg

DRUGS (4)
  1. TRAMADOL 50 MG AMNEAL PHARMACEUTICALS [Suspect]
     Active Substance: TRAMADOL
     Indication: PAIN
     Dosage: 1 TABLET EVERY 8 OURS, AS NEEDED, TAKEN BY MOUTH
     Dates: start: 20160113, end: 20160114
  2. NEXIUM [Concomitant]
     Active Substance: ESOMEPRAZOLE MAGNESIUM
  3. TRAMADOL. [Concomitant]
     Active Substance: TRAMADOL
  4. TRAMADOL 50 MG AMNEAL PHARMACEUTICALS [Suspect]
     Active Substance: TRAMADOL
     Indication: LIGAMENT SPRAIN
     Dosage: 1 TABLET EVERY 8 OURS, AS NEEDED, TAKEN BY MOUTH
     Dates: start: 20160113, end: 20160114

REACTIONS (6)
  - Dizziness [None]
  - Pruritus [None]
  - Nausea [None]
  - Vomiting [None]
  - Rash [None]
  - Loss of consciousness [None]

NARRATIVE: CASE EVENT DATE: 20160114
